FAERS Safety Report 23716354 (Version 1)
Quarter: 2024Q2

REPORT INFORMATION
  Report Type: Report from Study
  Country: US (occurrence: US)
  Receive Date: 20240408
  Receipt Date: 20240408
  Transmission Date: 20240716
  Serious: Yes (Death, Other)
  Sender: FDA-Public Use
  Company Number: US-ACADIA PHARMACEUTICALS INC.-ACA-2024-PIM-001529

PATIENT
  Age: 88 Year
  Sex: Male

DRUGS (2)
  1. NUPLAZID [Suspect]
     Active Substance: PIMAVANSERIN TARTRATE
     Indication: Parkinson^s disease
     Dosage: 44 MILLIGRAM, QD (10MG + 34MG)
     Route: 048
     Dates: start: 20220122, end: 202403
  2. NUPLAZID [Suspect]
     Active Substance: PIMAVANSERIN TARTRATE
     Indication: Parkinson^s disease
     Dosage: 44 MILLIGRAM, QD (34MG + 10MG)
     Route: 048
     Dates: start: 20220122, end: 202403

REACTIONS (2)
  - Death [Fatal]
  - Overdose [Recovered/Resolved]

NARRATIVE: CASE EVENT DATE: 20240301
